FAERS Safety Report 14979404 (Version 1)
Quarter: 2018Q2

REPORT INFORMATION
  Report Type: Spontaneous
  Country: FR (occurrence: FR)
  Receive Date: 20180606
  Receipt Date: 20180606
  Transmission Date: 20180711
  Serious: Yes (Other)
  Sender: FDA-Public Use
  Company Number: PHHY2018FR008361

PATIENT
  Sex: Female
  Weight: 3.15 kg

DRUGS (1)
  1. ELTROMBOPAG [Suspect]
     Active Substance: ELTROMBOPAG
     Indication: FOETAL EXPOSURE DURING PREGNANCY
     Dosage: MATERNAL DOSE: 50 MG/DAY
     Route: 064

REACTIONS (2)
  - MYH9-related disease [Recovered/Resolved]
  - Foetal exposure during pregnancy [Unknown]
